FAERS Safety Report 24213749 (Version 1)
Quarter: 2024Q3

REPORT INFORMATION
  Report Type: Report from Study
  Country: US (occurrence: US)
  Receive Date: 20240815
  Receipt Date: 20240815
  Transmission Date: 20241016
  Serious: Yes (Other)
  Sender: ROCHE
  Company Number: US-ROCHE-3339488

PATIENT
  Age: 69 Year
  Sex: Female
  Weight: 74.84 kg

DRUGS (4)
  1. RITUXAN [Suspect]
     Active Substance: RITUXIMAB
     Indication: Congenital anomaly
     Dosage: MORE DOSAGE INFORMATION IS: 1 INFUSION 2 WEEKS APART TO REPEAT EVERY 4 MONTH.
     Route: 065
  2. RITUXAN [Suspect]
     Active Substance: RITUXIMAB
     Indication: Vasculitis necrotising
  3. RITUXAN [Suspect]
     Active Substance: RITUXIMAB
     Indication: Systemic lupus erythematosus
  4. ELIQUIS [Concomitant]
     Active Substance: APIXABAN
     Indication: Atrial fibrillation
     Dosage: MORE DOSAGE INFORMATION: TABLETS COME AS 25 MG TABLETS - PATIENT TAKES 2 TABLETS DAILY. LASTDOSE ON
     Route: 048
     Dates: start: 2024

REACTIONS (5)
  - Atrial fibrillation [Not Recovered/Not Resolved]
  - Cardiac flutter [Not Recovered/Not Resolved]
  - Heart rate decreased [Recovered/Resolved]
  - Off label use [Unknown]
  - Mouth ulceration [Not Recovered/Not Resolved]

NARRATIVE: CASE EVENT DATE: 20220101
